FAERS Safety Report 8389183-9 (Version None)
Quarter: 2012Q2

REPORT INFORMATION
  Report Type: 
  Country: None (occurrence: None)
  Receive Date: 20120528
  Receipt Date: 20120524
  Transmission Date: 20120825
  Serious: Yes (Death)
  Sender: FDA-Public Use
  Company Number: PHHY2011IN112922

PATIENT
  Sex: Male

DRUGS (2)
  1. GLEEVEC [Suspect]
     Indication: CHRONIC MYELOID LEUKAEMIA
     Dosage: 600 MG,
     Route: 048
  2. GLEEVEC [Suspect]
     Dosage: 400 MG,
     Route: 048

REACTIONS (2)
  - DIZZINESS [None]
  - DEATH [None]
